FAERS Safety Report 8692854 (Version 3)
Quarter: 2012Q4

REPORT INFORMATION
  Report Type: 
  Country: IT (occurrence: IT)
  Receive Date: 20120730
  Receipt Date: 20120904
  Transmission Date: 20130627
  Serious: Yes (Life-Threatening)
  Sender: FDA-Public Use
  Company Number: IT-JNJFOC-20120711326

PATIENT
  Age: 56 Year
  Sex: Female
  Weight: 65 kg

DRUGS (3)
  1. VERMOX [Suspect]
     Indication: SELF INJURIOUS BEHAVIOUR
     Route: 048
     Dates: start: 20120723, end: 20120723
  2. ALBENDAZOLE [Suspect]
     Indication: SELF INJURIOUS BEHAVIOUR
     Route: 048
     Dates: start: 20120723, end: 20120723
  3. UNKNOWN MEDICATION [Suspect]
     Indication: SELF INJURIOUS BEHAVIOUR
     Route: 065
     Dates: start: 20120723, end: 20120723

REACTIONS (3)
  - Self injurious behaviour [Unknown]
  - Coma [Unknown]
  - Pain [None]
